FAERS Safety Report 9536809 (Version 1)
Quarter: 2013Q3

REPORT INFORMATION
  Report Type: Spontaneous
  Country: GB (occurrence: GB)
  Receive Date: 20130919
  Receipt Date: 20130919
  Transmission Date: 20140515
  Serious: Yes (Life-Threatening, Other)
  Sender: FDA-Public Use
  Company Number: GB-JNJFOC-20130909858

PATIENT
  Age: 63 Year
  Sex: Male
  Weight: 73 kg

DRUGS (7)
  1. XARELTO [Suspect]
     Indication: CEREBROVASCULAR ACCIDENT PROPHYLAXIS
     Route: 048
  2. XARELTO [Suspect]
     Indication: ATRIAL FIBRILLATION
     Route: 048
  3. AMITRIPTYLINE [Concomitant]
     Route: 065
  4. CO-CODAMOL [Concomitant]
     Route: 065
  5. PROPRANOLOL [Concomitant]
     Route: 065
  6. SUMATRIPTAN [Concomitant]
     Route: 065
  7. TOPIRAMATE [Concomitant]
     Route: 065

REACTIONS (2)
  - Subdural haematoma [Recovering/Resolving]
  - Condition aggravated [Unknown]
